FAERS Safety Report 7774520-6 (Version None)
Quarter: 2011Q3

REPORT INFORMATION
  Report Type: 
  Country: None (occurrence: None)
  Receive Date: 20110923
  Receipt Date: 20110923
  Transmission Date: 20111222
  Serious: Yes (Disabling)
  Sender: FDA-Public Use
  Company Number: None

PATIENT
  Age: 73 Year
  Sex: Female
  Weight: 51.709 kg

DRUGS (6)
  1. LOVASTATIN [Concomitant]
  2. TRIMATERENE-HCTZ [Concomitant]
  3. CALCIUM WITH D [Concomitant]
  4. ALENDRONATE SODIUM [Suspect]
     Dosage: ONE
     Route: 048
  5. IBUPROFEN [Concomitant]
  6. MIRALAX [Concomitant]

REACTIONS (2)
  - PATHOLOGICAL FRACTURE [None]
  - FEMUR FRACTURE [None]
